FAERS Safety Report 23002056 (Version 2)
Quarter: 2025Q1

REPORT INFORMATION
  Report Type: Spontaneous
  Country: CA (occurrence: CA)
  Receive Date: 20230928
  Receipt Date: 20250319
  Transmission Date: 20250408
  Serious: Yes (Hospitalization, Other)
  Sender: SANOFI AVENTIS
  Company Number: CA-SA-2023SA290099

PATIENT
  Age: 17 Year
  Sex: Female
  Weight: 64 kg

DRUGS (6)
  1. INSULIN GLARGINE [Suspect]
     Active Substance: INSULIN GLARGINE
     Indication: Type 1 diabetes mellitus
     Route: 058
     Dates: start: 202103
  2. INSULIN ASPART [Suspect]
     Active Substance: INSULIN ASPART
     Indication: Type 1 diabetes mellitus
     Route: 058
  3. INSULIN GLULISINE [Suspect]
     Active Substance: INSULIN GLULISINE
     Indication: Type 1 diabetes mellitus
     Route: 065
  4. INSULIN LISPRO [Suspect]
     Active Substance: INSULIN LISPRO
     Indication: Type 1 diabetes mellitus
     Route: 058
     Dates: start: 202001, end: 202002
  5. INSULIN HUMAN [Suspect]
     Active Substance: INSULIN HUMAN
     Indication: Type 1 diabetes mellitus
     Route: 065
  6. INSULIN DEGLUDEC [Suspect]
     Active Substance: INSULIN DEGLUDEC
     Indication: Type 1 diabetes mellitus
     Route: 065

REACTIONS (7)
  - Type III immune complex mediated reaction [Recovered/Resolved]
  - Abscess [Unknown]
  - Adhesion [Unknown]
  - Cellulitis [Unknown]
  - Diabetes mellitus inadequate control [Recovered/Resolved]
  - Diabetic ketoacidosis [Unknown]
  - Medical device site infection [Unknown]
